FAERS Safety Report 7522541-0 (Version None)
Quarter: 2011Q2

REPORT INFORMATION
  Report Type: 
  Country: None (occurrence: None)
  Receive Date: 20110603
  Receipt Date: 20110601
  Transmission Date: 20111010
  Serious: Yes (Other)
  Sender: FDA-Public Use
  Company Number: CR-PFIZER INC-2011119602

PATIENT
  Age: 49 Year
  Sex: Female

DRUGS (2)
  1. EUTHYROX [Concomitant]
     Dosage: 150 MCG, UNK
     Route: 048
  2. PANTOPRAZOLE [Suspect]
     Indication: GASTRITIS
     Dosage: 40 MG, UNK
     Route: 048

REACTIONS (1)
  - HELICOBACTER INFECTION [None]
